FAERS Safety Report 23794260 (Version 2)
Quarter: 2024Q3

REPORT INFORMATION
  Report Type: Spontaneous
  Country: US (occurrence: US)
  Receive Date: 20240429
  Receipt Date: 20240701
  Transmission Date: 20241017
  Serious: No
  Sender: PFIZER
  Company Number: US-PFIZER INC-PV202400048906

PATIENT
  Age: 52 Year
  Sex: Male
  Weight: 75.3 kg

DRUGS (2)
  1. NIVESTYM [Suspect]
     Active Substance: FILGRASTIM-AAFI
     Indication: White blood cell count decreased
     Dosage: 480 MICROGRAMS DAILY FOR THREE DAYS
     Route: 058
  2. NIVESTYM [Suspect]
     Active Substance: FILGRASTIM-AAFI
     Indication: Neutropenia
     Dosage: 480 MICROGRAMS OVER 0.8 MILLILITERS FOR THREE DAYS
     Route: 058

REACTIONS (3)
  - Product packaging issue [Unknown]
  - Device breakage [Unknown]
  - Device leakage [Unknown]
